FAERS Safety Report 15121403 (Version 1)
Quarter: 2018Q3

REPORT INFORMATION
  Report Type: Spontaneous
  Country: JP (occurrence: JP)
  Receive Date: 20180709
  Receipt Date: 20180709
  Transmission Date: 20181010
  Serious: Yes (Hospitalization, Other)
  Sender: FDA-Public Use
  Company Number: JP-PFIZER INC-2017288533

PATIENT
  Age: 74 Year
  Sex: Male
  Weight: 49 kg

DRUGS (7)
  1. AVOLVE [Concomitant]
     Active Substance: DUTASTERIDE
     Dosage: UNK
  2. BENIDIPINE [Concomitant]
     Active Substance: BENIDIPINE
     Dosage: UNK
  3. PREDONINE [Concomitant]
     Active Substance: PREDNISOLONE
     Dosage: UNK
  4. BAYASPIRIN [Concomitant]
     Active Substance: ASPIRIN
     Dosage: UNK
  5. AZULFIDINE EN?TABS [Suspect]
     Active Substance: SULFASALAZINE
     Indication: POLYMYALGIA RHEUMATICA
     Dosage: 1000 MG, DAILY
     Route: 048
     Dates: start: 20170515, end: 20170612
  6. ONEALPHA [Concomitant]
     Dosage: UNK
  7. TAMSULOSIN [Concomitant]
     Active Substance: TAMSULOSIN
     Dosage: UNK

REACTIONS (2)
  - Drug reaction with eosinophilia and systemic symptoms [Not Recovered/Not Resolved]
  - Drug eruption [Unknown]

NARRATIVE: CASE EVENT DATE: 20170610
